FAERS Safety Report 6381240-1 (Version None)
Quarter: 2009Q3

REPORT INFORMATION
  Report Type: 
  Country: None (occurrence: None)
  Receive Date: 20090923
  Receipt Date: 20090909
  Transmission Date: 20100115
  Serious: Yes (Other)
  Sender: FDA-Public Use
  Company Number: 2009EN000258

PATIENT
  Age: 81 Year
  Sex: Female

DRUGS (4)
  1. ONCASPAR [Suspect]
     Indication: B PRECURSOR TYPE ACUTE LEUKAEMIA
     Dosage: 2500 IU/ M2; X1; IV
     Route: 042
     Dates: start: 20080821, end: 20080821
  2. VINCRISTINE [Concomitant]
  3. DAUNORUBICIN HCL [Concomitant]
  4. CORTICOSTEROID [Concomitant]

REACTIONS (1)
  - HEPATIC STEATOSIS [None]
